FAERS Safety Report 21567896 (Version 3)
Quarter: 2022Q4

REPORT INFORMATION
  Report Type: Report from Study
  Country: US (occurrence: US)
  Receive Date: 20221108
  Receipt Date: 20221113
  Transmission Date: 20230113
  Serious: No
  Sender: FDA-Public Use
  Company Number: US-ROCHE-3210893

PATIENT
  Age: 44 Year
  Sex: Female
  Weight: 80.358 kg

DRUGS (6)
  1. XOLAIR [Suspect]
     Active Substance: OMALIZUMAB
     Indication: Urticaria
     Dosage: 300 MG, EVERY 4 WEEKS (150 MG IN EACH ARM)
     Route: 058
     Dates: start: 20211105
  2. XOLAIR [Suspect]
     Active Substance: OMALIZUMAB
     Indication: Idiopathic urticaria
     Dosage: 300 MG, EVERY 4 WEEKS
     Route: 058
     Dates: start: 20220428
  3. PREDNISONE [Suspect]
     Active Substance: PREDNISONE
     Indication: Urticaria
     Dosage: 20 MG, SINGLE QD
     Route: 065
     Dates: start: 20221005
  4. ZYRTEC [Concomitant]
     Active Substance: CETIRIZINE HYDROCHLORIDE
     Indication: Hypersensitivity
     Dosage: 20 MG, QD
     Route: 065
     Dates: start: 202102
  5. SINGULAIR [Concomitant]
     Active Substance: MONTELUKAST SODIUM
     Indication: Asthma
     Dosage: 10 MG, QD
     Route: 065
     Dates: start: 202102
  6. EPIPEN [Concomitant]
     Active Substance: EPINEPHRINE
     Indication: Hypersensitivity
     Dosage: UNK
     Route: 065
     Dates: start: 20211105

REACTIONS (4)
  - Nausea [Recovering/Resolving]
  - Abdominal discomfort [Unknown]
  - Gastric disorder [Unknown]
  - Disease progression [Unknown]
